FAERS Safety Report 9857100 (Version 1)
Quarter: 2014Q1

REPORT INFORMATION
  Report Type: Spontaneous
  Country: US (occurrence: None)
  Receive Date: 20140128
  Receipt Date: 20140128
  Transmission Date: 20141002
  Serious: Yes (Other)
  Sender: FDA-Public Use
  Company Number: 7265303

PATIENT
  Age: 66 Year
  Sex: Female

DRUGS (2)
  1. LEVOTHYROXINE [Suspect]
     Indication: PRODUCT USED FOR UNKNOWN INDICATION
  2. METFORMIN (METFORMIN) (METFORMIN) [Suspect]
     Indication: PRODUCT USED FOR UNKNOWN INDICATION

REACTIONS (3)
  - Renal impairment [None]
  - Renal tubular atrophy [None]
  - Kidney fibrosis [None]
